FAERS Safety Report 7861116-0 (Version None)
Quarter: 2011Q4

REPORT INFORMATION
  Report Type: 
  Country: None (occurrence: None)
  Receive Date: 20111027
  Receipt Date: 20111018
  Transmission Date: 20120403
  Serious: Yes (Other)
  Sender: FDA-Public Use
  Company Number: US-ASTRAZENECA-2011SE62989

PATIENT
  Age: 62 Year
  Sex: Female

DRUGS (7)
  1. ALBUTEROL [Concomitant]
     Dosage: 90 MCG/INH, 2 PUFFS 4 TIMES A DAY
     Route: 055
  2. ATACAND [Suspect]
     Dosage: 32 MG -12.5 MG ONCE DAILY
     Route: 048
  3. CELEXA [Concomitant]
     Route: 048
  4. METHYLPHENIDATE [Concomitant]
     Route: 048
  5. DICLOFENAC SODIUM [Concomitant]
     Route: 048
  6. MULTI-VITAMIN [Concomitant]
     Dosage: ONCE DAILY
     Route: 048
  7. LIPITOR [Concomitant]
     Route: 048

REACTIONS (16)
  - HYPOTHYROIDISM [None]
  - GOUT [None]
  - OBESITY [None]
  - BACK DISORDER [None]
  - PICKWICKIAN SYNDROME [None]
  - BRONCHIAL HYPERREACTIVITY [None]
  - SLEEP APNOEA SYNDROME [None]
  - TENOSYNOVITIS STENOSANS [None]
  - SKIN PAPILLOMA [None]
  - TEMPERATURE INTOLERANCE [None]
  - ECZEMA [None]
  - EXOSTOSIS [None]
  - BUNDLE BRANCH BLOCK BILATERAL [None]
  - HYPERLIPIDAEMIA [None]
  - OSTEOARTHRITIS [None]
  - SNORING [None]
